FAERS Safety Report 13853369 (Version 1)
Quarter: 2017Q3

REPORT INFORMATION
  Report Type: Spontaneous
  Country: CZ (occurrence: CZ)
  Receive Date: 20170809
  Receipt Date: 20170809
  Transmission Date: 20171127
  Serious: Yes (Hospitalization, Other)
  Sender: FDA-Public Use
  Company Number: CZ-PFIZER INC-2017335896

PATIENT
  Age: 31 Year
  Sex: Female

DRUGS (4)
  1. METHYLPREDNISOLONE. [Suspect]
     Active Substance: METHYLPREDNISOLONE
     Dosage: 2 MG, DAILY (SHORT-TERM THERAPY)
  2. METHYLPREDNISOLONE. [Suspect]
     Active Substance: METHYLPREDNISOLONE
     Dosage: 4 MG, DAILY
     Dates: start: 201212
  3. METHYLPREDNISOLONE. [Suspect]
     Active Substance: METHYLPREDNISOLONE
     Dosage: 16 MG, DAILY
  4. METHYLPREDNISOLONE. [Suspect]
     Active Substance: METHYLPREDNISOLONE
     Indication: IMMUNOSUPPRESSION
     Dosage: 0.5 MG/KG, UNK

REACTIONS (9)
  - Muscle atrophy [Unknown]
  - Oedema [Unknown]
  - Immunoglobulins decreased [Unknown]
  - Cushingoid [Unknown]
  - Lung infection pseudomonal [Unknown]
  - Bronchopulmonary aspergillosis [Unknown]
  - Muscular weakness [Unknown]
  - Respiratory tract infection [Unknown]
  - Fluid retention [Unknown]

NARRATIVE: CASE EVENT DATE: 2012
